FAERS Safety Report 21908457 (Version 2)
Quarter: 2023Q1

REPORT INFORMATION
  Report Type: Spontaneous
  Country: US (occurrence: US)
  Receive Date: 20230125
  Receipt Date: 20230130
  Transmission Date: 20230417
  Serious: Yes (Hospitalization)
  Sender: FDA-Public Use
  Company Number: US-002147023-NVSC2023US013864

PATIENT
  Age: 74 Year
  Sex: Female

DRUGS (12)
  1. LOSARTAN [Suspect]
     Active Substance: LOSARTAN
     Indication: Hypertension
     Dosage: UNK
     Route: 065
     Dates: end: 20221107
  2. VITAMIN D3 [Suspect]
     Active Substance: CHOLECALCIFEROL
     Indication: Nutritional supplementation
     Dosage: 10000 IU, QD (EITHER IN THE MORNING OR THE EVENING (ALSO REPORTED AS AT NIGHT), WITH A MEAL AND WATE
     Route: 048
     Dates: start: 2016, end: 20221107
  3. CALCIUM\MAGNESIUM [Suspect]
     Active Substance: CALCIUM\MAGNESIUM
     Indication: Nutritional supplementation
     Dosage: ONE CAPLET, QD, EITHER IN THE MORNING OR THE EVENING (ALSO REPORTED AS AT NIGHT), WITH A MEAL AND WA
     Route: 048
     Dates: start: 200803, end: 20221107
  4. GLIMEPIRIDE [Concomitant]
     Active Substance: GLIMEPIRIDE
     Indication: Diabetes mellitus
     Dosage: 4 MG, BID
     Route: 065
  5. SITAGLIPTIN [Concomitant]
     Active Substance: SITAGLIPTIN
     Indication: Diabetes mellitus
     Dosage: 100 MG, QD
     Route: 065
  6. ESOMEPRAZOLE [Concomitant]
     Active Substance: ESOMEPRAZOLE
     Indication: Ulcer
     Dosage: 40 MG, QD FOR YEAR AND FOR ULCER
     Route: 065
  7. SODIUM BICARBONATE [Concomitant]
     Active Substance: SODIUM BICARBONATE
     Indication: Ulcer
     Dosage: 650 MG, BID, THIS WEEK FOR ULCERS
     Route: 065
  8. FUROSEMIDE [Concomitant]
     Active Substance: FUROSEMIDE
     Indication: Product used for unknown indication
     Dosage: 20 MG, QD FOR TWO YEARS
     Route: 065
  9. LEVOTHYROXINE [Concomitant]
     Active Substance: LEVOTHYROXINE
     Indication: Thyroid disorder
     Dosage: 50 UG, QD, FOR TWO YEARS
     Route: 065
  10. AMLODIPINE [Concomitant]
     Active Substance: AMLODIPINE BESYLATE
     Indication: Hypertension
     Dosage: 5 MG, QD
     Route: 065
     Dates: start: 20221107
  11. SPIRONOLACTONE [Concomitant]
     Active Substance: SPIRONOLACTONE
     Indication: Dehydration
     Dosage: 50 MG, QD
     Route: 065
  12. GLUCOSAMINE [Concomitant]
     Active Substance: GLUCOSAMINE
     Indication: Nutritional supplementation
     Dosage: 680 MG, QD, NOT TO LONG
     Route: 065

REACTIONS (4)
  - Renal failure [Unknown]
  - Encephalopathy [Unknown]
  - Feeling abnormal [Unknown]
  - Confusional state [Unknown]

NARRATIVE: CASE EVENT DATE: 20220701
